FAERS Safety Report 6936688-0 (Version None)
Quarter: 2010Q3

REPORT INFORMATION
  Report Type: 
  Country: None (occurrence: None)
  Receive Date: 20100823
  Receipt Date: 20100817
  Transmission Date: 20110219
  Serious: Yes (Death)
  Sender: FDA-Public Use
  Company Number: FR-ROCHE-721624

PATIENT
  Sex: Female

DRUGS (9)
  1. ROCEPHIN [Suspect]
     Indication: INFECTION
     Dosage: FORM: INFUSION
     Route: 042
     Dates: start: 20100622, end: 20100628
  2. OFLOCET [Suspect]
     Indication: INFECTION
     Route: 048
     Dates: start: 20100622, end: 20100628
  3. AMOXICILLIN [Concomitant]
     Dates: end: 20100628
  4. PLAVIX [Concomitant]
     Dates: end: 20100628
  5. EXELON [Concomitant]
     Dates: end: 20100628
  6. INSULIN GLARGINE [Concomitant]
     Dosage: DRUG REPORTED AS INSULIN LANTUS
     Dates: end: 20100628
  7. NEXIUM [Concomitant]
  8. PERINDOPRIL ERBUMINE [Concomitant]
     Dates: end: 20100628
  9. MODOPAR [Concomitant]
     Dates: end: 20100628

REACTIONS (1)
  - ANAEMIA HAEMOLYTIC AUTOIMMUNE [None]
